FAERS Safety Report 4558657-0 (Version None)
Quarter: 2005Q1

REPORT INFORMATION
  Report Type: 
  Country: None (occurrence: None)
  Receive Date: 20050121
  Receipt Date: 20050121
  Transmission Date: 20050727
  Serious: No
  Sender: FDA-Public Use
  Company Number: None

PATIENT
  Sex: Female

DRUGS (1)
  1. ZOMETA [Suspect]
     Dosage: 32 MG TOTAL
     Dates: start: 20021108, end: 20040810

REACTIONS (1)
  - ACUTE MYELOID LEUKAEMIA [None]
